FAERS Safety Report 15004222 (Version 2)
Quarter: 2018Q3

REPORT INFORMATION
  Report Type: Spontaneous
  Country: US (occurrence: US)
  Receive Date: 20180613
  Receipt Date: 20180718
  Transmission Date: 20181010
  Serious: Yes (Disabling, Other)
  Sender: FDA-Public Use
  Company Number: US-PFIZER INC-2018235658

PATIENT
  Age: 65 Year
  Sex: Female
  Weight: 56.7 kg

DRUGS (5)
  1. MS CONTIN [Concomitant]
     Active Substance: MORPHINE SULFATE
     Indication: SPINAL OSTEOARTHRITIS
     Dosage: 60 MG, 2X/DAY
     Dates: start: 2001
  2. LYRICA [Suspect]
     Active Substance: PREGABALIN
     Indication: FIBROMYALGIA
     Dosage: 150 MG, 2X/DAY
     Route: 048
  3. LYRICA [Suspect]
     Active Substance: PREGABALIN
     Dosage: 50 MG, 2X/DAY
     Route: 048
  4. ESTRADIOL. [Concomitant]
     Active Substance: ESTRADIOL
     Indication: HORMONE REPLACEMENT THERAPY
     Dosage: UNK
     Dates: start: 2012
  5. PERCOCET [Concomitant]
     Active Substance: ACETAMINOPHEN\OXYCODONE HYDROCHLORIDE
     Indication: SPINAL OSTEOARTHRITIS
     Dosage: UNK, AS NEEDED [OXYCODONE 10?ACETAMINOPHEN?325]
     Dates: start: 2005

REACTIONS (11)
  - Cognitive disorder [Recovered/Resolved]
  - Back pain [Unknown]
  - Fatigue [Recovered/Resolved]
  - Drug ineffective [Unknown]
  - Feeling abnormal [Unknown]
  - Mental disorder [Recovered/Resolved]
  - Pain [Recovered/Resolved]
  - Asthenia [Recovered/Resolved]
  - Pain in extremity [Recovered/Resolved]
  - Product quality issue [Unknown]
  - Withdrawal syndrome [Unknown]
